FAERS Safety Report 8443788 (Version 2)
Quarter: 2013Q2

REPORT INFORMATION
  Report Type: Report from Study
  Country: MX (occurrence: MX)
  Receive Date: 20120306
  Receipt Date: 20130418
  Transmission Date: 20140414
  Serious: Yes (Death)
  Sender: FDA-Public Use
  Company Number: PHHY2012MX018970

PATIENT
  Age: 76 Year
  Sex: Female

DRUGS (2)
  1. EXFORGE [Suspect]
     Indication: HYPERTENSION
     Dosage: 1 DF, (160 MG VALS/ 5 MG AMLO) DAILY
     Route: 048
     Dates: start: 201109
  2. TENORMIN [Concomitant]
     Indication: HYPERTENSION
     Dates: start: 201202

REACTIONS (1)
  - Respiratory arrest [Fatal]
